FAERS Safety Report 4363853-1 (Version None)
Quarter: 2004Q2

REPORT INFORMATION
  Report Type: 
  Country: None (occurrence: None)
  Receive Date: 20040519
  Receipt Date: 20040503
  Transmission Date: 20050107
  Serious: Yes (Other)
  Sender: FDA-Public Use
  Company Number: DE-SHR-04-020360

PATIENT
  Age: 25 Year
  Sex: Female
  Weight: 56 kg

DRUGS (4)
  1. BETAFERON(INTERFERON BETA - 1B) INJECTION, 250UG [Suspect]
     Indication: MULTIPLE SCLEROSIS
     Dosage: 1 ML, 3X/WEEK, SUBCUTANEOUS
     Route: 058
     Dates: start: 20020101
  2. EVRA /GFR(ETHINYESTRADIOL, NORELGESTROMIN) PATCH [Suspect]
     Indication: CONTRACEPTION
     Dosage: 0, TRANSDERMAL
     Route: 062
     Dates: start: 20030801
  3. CITALOPRAM [Concomitant]
  4. LEVOTHYROXINE SODIUM [Concomitant]

REACTIONS (4)
  - ARTHRALGIA [None]
  - DISTURBANCE IN ATTENTION [None]
  - DRUG INTERACTION [None]
  - RHABDOMYOLYSIS [None]
